FAERS Safety Report 11957316 (Version 1)
Quarter: 2016Q1

REPORT INFORMATION
  Report Type: Report from Study
  Country: MX (occurrence: MX)
  Receive Date: 20160126
  Receipt Date: 20160126
  Transmission Date: 20160526
  Serious: Yes (Hospitalization, Other)
  Sender: FDA-Public Use
  Company Number: MX-ABBVIE-12P-107-0945460-00

PATIENT
  Age: 35 Year
  Sex: Female
  Weight: 67.5 kg

DRUGS (9)
  1. KALETRA [Suspect]
     Active Substance: LOPINAVIR\RITONAVIR
     Indication: HIV INFECTION
     Dosage: 400/100MG TWICE A DAY
     Route: 048
     Dates: start: 20120528
  2. RALTEGRAVIR. [Concomitant]
     Active Substance: RALTEGRAVIR
     Indication: HIV INFECTION
     Route: 048
     Dates: start: 20120328, end: 20120523
  3. BEZAFIBRATE [Concomitant]
     Active Substance: BEZAFIBRATE
     Indication: HYPERTRIGLYCERIDAEMIA
     Route: 048
     Dates: start: 20120411, end: 20120528
  4. BMS-663068 [Concomitant]
     Indication: HIV INFECTION
     Route: 048
     Dates: start: 20120328, end: 20120523
  5. FOLIC ACID. [Concomitant]
     Active Substance: FOLIC ACID
     Indication: PREGNANCY
     Route: 048
     Dates: start: 20120528, end: 20120605
  6. TENOFOVIR [Concomitant]
     Active Substance: TENOFOVIR
     Route: 048
     Dates: start: 20120607
  7. OMEGA-3 ACIDS [Concomitant]
     Active Substance: OMEGA-3 FATTY ACIDS
     Indication: HYPERTRIGLYCERIDAEMIA
     Dates: start: 20120229, end: 20120528
  8. TENOFOVIR [Concomitant]
     Active Substance: TENOFOVIR
     Indication: HIV INFECTION
     Route: 048
     Dates: start: 20120328, end: 20120523
  9. LAMIVUDINE AND ZIDOVUDINE [Concomitant]
     Active Substance: LAMIVUDINE\ZIDOVUDINE
     Indication: HIV INFECTION
     Dosage: 300/150MG TWICE A DAY
     Route: 048
     Dates: start: 20120528

REACTIONS (4)
  - Foetal death [Unknown]
  - Abortion spontaneous [Unknown]
  - Exposure during pregnancy [Unknown]
  - Uterine dilation and curettage [Unknown]

NARRATIVE: CASE EVENT DATE: 20120604
